FAERS Safety Report 24255110 (Version 1)
Quarter: 2024Q3

REPORT INFORMATION
  Report Type: Spontaneous
  Country: US (occurrence: None)
  Receive Date: 20240826
  Receipt Date: 20240826
  Transmission Date: 20241016
  Serious: Yes (Hospitalization)
  Sender: Public
  Company Number: None

PATIENT
  Sex: Female
  Weight: 68.49 kg

DRUGS (3)
  1. WINREVAIR [Suspect]
     Active Substance: SOTATERCEPT-CSRK
     Indication: Pulmonary arterial hypertension
     Dosage: FREQUENCY : EVERY THREE WEEKS;?
     Route: 058
     Dates: start: 202408
  2. OPSUMIT [Concomitant]
     Active Substance: MACITENTAN
  3. TREPROSTINIL [Concomitant]
     Active Substance: TREPROSTINIL

REACTIONS (2)
  - Unresponsive to stimuli [None]
  - Mental status changes [None]
